FAERS Safety Report 21551525 (Version 3)
Quarter: 2023Q2

REPORT INFORMATION
  Report Type: Report from Study
  Country: US (occurrence: US)
  Receive Date: 20221103
  Receipt Date: 20230417
  Transmission Date: 20230721
  Serious: Yes (Other)
  Sender: FDA-Public Use
  Company Number: US-ABBVIE-4186052

PATIENT
  Sex: Female

DRUGS (4)
  1. RINVOQ [Suspect]
     Active Substance: UPADACITINIB
     Indication: Rheumatoid arthritis
     Route: 048
  2. RINVOQ [Suspect]
     Active Substance: UPADACITINIB
     Indication: Rheumatoid arthritis
     Route: 048
  3. RINVOQ [Suspect]
     Active Substance: UPADACITINIB
     Indication: Rheumatoid arthritis
     Route: 048
  4. RINVOQ [Suspect]
     Active Substance: UPADACITINIB
     Indication: Rheumatoid arthritis
     Route: 048
     Dates: start: 20211124

REACTIONS (11)
  - Cardiac failure congestive [Not Recovered/Not Resolved]
  - Skin lesion [Unknown]
  - Peripheral swelling [Unknown]
  - Joint effusion [Not Recovered/Not Resolved]
  - Rheumatoid arthritis [Unknown]
  - Dyspnoea [Unknown]
  - PO2 decreased [Unknown]
  - Walking aid user [Not Recovered/Not Resolved]
  - Tendon injury [Not Recovered/Not Resolved]
  - Osteoarthritis [Not Recovered/Not Resolved]
  - Rosacea [Recovered/Resolved with Sequelae]
